FAERS Safety Report 5658990-5 (Version None)
Quarter: 2008Q1

REPORT INFORMATION
  Report Type: 
  Country: None (occurrence: None)
  Receive Date: 20080310
  Receipt Date: 20070515
  Transmission Date: 20080703
  Serious: No
  Sender: FDA-Public Use
  Company Number: US-BAYER-200711579BCC

PATIENT
  Age: 3 Year
  Sex: Female
  Weight: 18 kg

DRUGS (1)
  1. ALEVE (CAPLET) [Suspect]
     Indication: ACCIDENTAL EXPOSURE
     Route: 048
     Dates: start: 20070515

REACTIONS (2)
  - ACCIDENTAL EXPOSURE [None]
  - NO ADVERSE EVENT [None]
